FAERS Safety Report 4619255-3 (Version None)
Quarter: 2005Q2

REPORT INFORMATION
  Report Type: 
  Country: None (occurrence: None)
  Receive Date: 20050321
  Receipt Date: 20041012
  Transmission Date: 20051028
  Serious: Yes (Other)
  Sender: FDA-Public Use
  Company Number: 2004-10-0695

PATIENT
  Age: 50 Year
  Sex: Male
  Weight: 93.441 kg

DRUGS (5)
  1. PEG-INTRON [Suspect]
     Indication: HEPATITIS C
     Dosage: 150 MCG QWK SUBCUTANEOUS  ; 120 MCG QWK SUBCUTANEOUS
     Route: 058
     Dates: start: 20040312, end: 20040101
  2. PEG-INTRON [Suspect]
     Indication: HEPATITIS C
     Dosage: 150 MCG QWK SUBCUTANEOUS  ; 120 MCG QWK SUBCUTANEOUS
     Route: 058
     Dates: start: 20040101, end: 20041008
  3. REBETOL [Suspect]
     Indication: HEPATITIS C
     Dosage: 1200 MG QD ORAL ; 800 MG QD ORAL
     Route: 048
     Dates: start: 20040312, end: 20040101
  4. REBETOL [Suspect]
     Indication: HEPATITIS C
     Dosage: 1200 MG QD ORAL ; 800 MG QD ORAL
     Route: 048
     Dates: start: 20040101, end: 20041015
  5. PROZAC [Concomitant]

REACTIONS (7)
  - EPISTAXIS [None]
  - GINGIVAL BLEEDING [None]
  - NEUTROPHIL COUNT DECREASED [None]
  - RETINAL EXUDATES [None]
  - RETINAL HAEMORRHAGE [None]
  - VISION BLURRED [None]
  - WEIGHT DECREASED [None]
